FAERS Safety Report 8866369 (Version 2)
Quarter: 2012Q4

REPORT INFORMATION
  Report Type: 
  Country: US (occurrence: US)
  Receive Date: 20121025
  Receipt Date: 20121108
  Transmission Date: 20130627
  Serious: Yes (Other)
  Sender: FDA-Public Use
  Company Number: US-ASTRAZENECA-2012SE79295

PATIENT
  Age: 65 Year
  Sex: Female
  Weight: 67.1 kg

DRUGS (7)
  1. NEXIUM [Suspect]
     Indication: GASTROOESOPHAGEAL REFLUX DISEASE
     Route: 048
     Dates: end: 2012
  2. CHEMOTHERAPY [Suspect]
     Indication: INFLAMMATORY CARCINOMA OF THE BREAST
     Route: 065
     Dates: start: 2012
  3. ARMOUR [Concomitant]
     Indication: THYROID DISORDER
  4. FLEXERIL [Concomitant]
     Indication: MUSCLE SPASMS
  5. KLONOPIN [Concomitant]
     Indication: MUSCLE SPASMS
  6. PEPCID [Concomitant]
  7. UNKNOWN ANTIBIOTICS [Concomitant]

REACTIONS (7)
  - Inflammatory carcinoma of the breast [Unknown]
  - Gastrooesophageal reflux disease [Unknown]
  - Asthenia [Unknown]
  - Dysphonia [Unknown]
  - Fatigue [Unknown]
  - Nasopharyngitis [Unknown]
  - Intentional drug misuse [Unknown]
